FAERS Safety Report 4805400-3 (Version None)
Quarter: 2005Q4

REPORT INFORMATION
  Report Type: 
  Country: None (occurrence: None)
  Receive Date: 20051017
  Receipt Date: 20051005
  Transmission Date: 20060501
  Serious: Yes (Other)
  Sender: FDA-Public Use
  Company Number: 2005112648

PATIENT
  Age: 43 Year
  Sex: Male
  Weight: 88.4514 kg

DRUGS (11)
  1. DILANTIN [Suspect]
     Indication: CONVULSION
     Dosage: 400 MG (400 MG,  1 IN 1 D)
     Dates: start: 19970101
  2. DILTIAZEM [Concomitant]
  3. LISINOPRIL [Concomitant]
  4. LORTAB        (HYDROCODONE BITARTRATE, PARACEAMOL) [Concomitant]
  5. NEXIUM [Concomitant]
  6. XANAX [Concomitant]
  7. SOMA [Concomitant]
  8. ZOCOR [Concomitant]
  9. MAXALT [Concomitant]
  10. IMITREX [Concomitant]
  11. DURAGESIC-100 [Concomitant]

REACTIONS (2)
  - CARDIAC FLUTTER [None]
  - CONDITION AGGRAVATED [None]
